FAERS Safety Report 9742320 (Version 1)
Quarter: 2013Q4

REPORT INFORMATION
  Report Type: Spontaneous
  Country: US (occurrence: US)
  Receive Date: 20131210
  Receipt Date: 20131210
  Transmission Date: 20140711
  Serious: No
  Sender: FDA-Public Use
  Company Number: US-ENDO PHARMACEUTICALS INC.-SPIR20120007

PATIENT
  Age: 69 Year
  Sex: Male
  Weight: 74.91 kg

DRUGS (7)
  1. SPIRONOLACTONE TABLETS [Suspect]
     Indication: OEDEMA PERIPHERAL
     Route: 048
     Dates: start: 201207
  2. SPIRONOLACTONE TABLETS [Suspect]
     Route: 048
     Dates: start: 201201, end: 201207
  3. AZILECT [Suspect]
     Indication: PARKINSON^S DISEASE
     Dosage: UNKNOWN
     Route: 065
  4. PRAMIPEXOLE [Suspect]
     Indication: PARKINSON^S DISEASE
     Dosage: UNKNOWN
     Route: 065
  5. ALLOPURINOL TABLETS 300MG [Concomitant]
     Indication: GOUT
     Route: 065
     Dates: start: 1997
  6. ALLOPURINOL TABLETS 300MG [Concomitant]
     Indication: NEPHROLITHIASIS
  7. KLONOPIN [Concomitant]
     Indication: DIZZINESS
     Dosage: UNKNOWN
     Route: 065

REACTIONS (4)
  - Potentiating drug interaction [Not Recovered/Not Resolved]
  - Vertigo [Not Recovered/Not Resolved]
  - Dizziness [Not Recovered/Not Resolved]
  - Drug ineffective [Recovered/Resolved]
